FAERS Safety Report 9885737 (Version 3)
Quarter: 2014Q3

REPORT INFORMATION
  Report Type: Spontaneous
  Country: US (occurrence: US)
  Receive Date: 20140210
  Receipt Date: 20140904
  Transmission Date: 20150326
  Serious: Yes (Hospitalization)
  Sender: FDA-Public Use
  Company Number: US-009507513-1402USA003537

PATIENT
  Sex: Female

DRUGS (1)
  1. NUVARING [Suspect]
     Active Substance: ETHINYL ESTRADIOL\ETONOGESTREL
     Indication: PRODUCT USED FOR UNKNOWN INDICATION
     Dosage: UNK
     Route: 067
     Dates: end: 200606

REACTIONS (7)
  - Thrombophlebitis superficial [Recovered/Resolved]
  - Acne [Unknown]
  - Abscess drainage [Unknown]
  - Vaginitis bacterial [Unknown]
  - Staphylococcal infection [Unknown]
  - Deep vein thrombosis [Recovered/Resolved]
  - Deep vein thrombosis [Unknown]

NARRATIVE: CASE EVENT DATE: 20060101
